FAERS Safety Report 7094723-6 (Version None)
Quarter: 2010Q4

REPORT INFORMATION
  Report Type: 
  Country: None (occurrence: None)
  Receive Date: 20101110
  Receipt Date: 20080724
  Transmission Date: 20110411
  Serious: No
  Sender: FDA-Public Use
  Company Number: US-KINGPHARMUSA00001-K200800872

PATIENT
  Age: 37 Year
  Sex: Female

DRUGS (4)
  1. SKELAXIN [Suspect]
     Indication: MUSCULOSKELETAL PAIN
     Dosage: UNK, UNK
     Route: 048
     Dates: start: 20080701, end: 20080701
  2. SKELAXIN [Suspect]
     Indication: NECK PAIN
  3. DARVOCET [Concomitant]
  4. OXYCODONE HCL [Concomitant]
     Dosage: UNK, UNK

REACTIONS (2)
  - NAUSEA [None]
  - VOMITING [None]
